FAERS Safety Report 6474774-2 (Version None)
Quarter: 2009Q4

REPORT INFORMATION
  Report Type: 
  Country: None (occurrence: None)
  Receive Date: 20091204
  Receipt Date: 20090526
  Transmission Date: 20100525
  Serious: Yes (Other)
  Sender: FDA-Public Use
  Company Number: US-ELI_LILLY_AND_COMPANY-US200902001726

PATIENT
  Sex: Male
  Weight: 86.621 kg

DRUGS (14)
  1. BYETTA [Suspect]
     Indication: TYPE 2 DIABETES MELLITUS
     Dosage: 5 UG, UNK
     Route: 058
     Dates: start: 20080820, end: 20080920
  2. BYETTA [Suspect]
     Dosage: 10 UG, 2/D
     Route: 058
     Dates: start: 20080920, end: 20090130
  3. GLUCOVANCE [Concomitant]
     Dosage: UNK, 2/D
     Route: 048
     Dates: start: 20030822
  4. JANUVIA [Concomitant]
     Dosage: 100 MG, DAILY (1/D)
     Route: 048
     Dates: start: 20070724, end: 20080818
  5. AVANDIA [Concomitant]
     Dosage: 8 MG, DAILY (1/D)
     Dates: start: 20060101, end: 20070612
  6. HYDROCHLOROTHIAZIDE [Concomitant]
     Dosage: 12.5 MG, UNK
     Dates: start: 20050111
  7. VALSARTAN [Concomitant]
     Dosage: 160 MG, 2/D
     Route: 048
     Dates: start: 20060609
  8. METOPROLOL [Concomitant]
     Dosage: 50 MG, EACH MORNING
     Route: 048
     Dates: start: 20040101
  9. METOPROLOL [Concomitant]
     Dosage: 25 MG, EACH EVENING
     Dates: start: 20040101
  10. TRICOR [Concomitant]
     Dosage: 145 MG, DAILY (1/D)
     Route: 048
     Dates: start: 20030822
  11. ZOCOR [Concomitant]
     Dosage: 40 MG, DAILY (1/D)
     Route: 048
     Dates: start: 20060918
  12. OMEPRAZOLE [Concomitant]
     Dosage: 20 MG, 2/D
     Route: 048
     Dates: start: 20060101
  13. POTASSIUM [Concomitant]
     Dosage: 10 MEQ, DAILY (1/D)
     Route: 048
     Dates: start: 20040101
  14. ASPIRIN [Concomitant]
     Dosage: 325 MG, DAILY (1/D)
     Route: 048
     Dates: start: 20050426

REACTIONS (4)
  - CHOLELITHIASIS [None]
  - DIARRHOEA [None]
  - PANCREATITIS [None]
  - WEIGHT DECREASED [None]
